FAERS Safety Report 9131153 (Version 2)
Quarter: 2013Q2

REPORT INFORMATION
  Report Type: Report from Study
  Country: US (occurrence: US)
  Receive Date: 20130301
  Receipt Date: 20130410
  Transmission Date: 20140414
  Serious: Yes (Hospitalization)
  Sender: FDA-Public Use
  Company Number: US-PURDUE-USA-2013-0099168

PATIENT
  Sex: Male
  Weight: 97.51 kg

DRUGS (4)
  1. OXYCONTIN (NDA 22-272) [Suspect]
     Indication: ORAL NEOPLASM
     Dosage: 80 MG, Q12H
     Route: 048
     Dates: start: 20121231
  2. OXYCONTIN (NDA 22-272) [Suspect]
     Indication: CANCER PAIN
     Dosage: 120 MG, BID
     Route: 048
  3. LORTAB                             /00607101/ [Concomitant]
     Indication: PAIN
     Dosage: 3 TSP, Q3- 4H, PRN
     Route: 048
     Dates: start: 20121230
  4. XANAX [Concomitant]
     Indication: ANXIETY
     Dosage: 1 MG, BID
     Route: 048
     Dates: start: 20121230

REACTIONS (3)
  - Increased upper airway secretion [Recovered/Resolved]
  - Chest pain [Recovered/Resolved]
  - Cough [Recovered/Resolved]
